FAERS Safety Report 6150983-7 (Version None)
Quarter: 2009Q2

REPORT INFORMATION
  Report Type: 
  Country: None (occurrence: None)
  Receive Date: 20090410
  Receipt Date: 20081215
  Transmission Date: 20091009
  Serious: No
  Sender: FDA-Public Use
  Company Number: A0761122A

PATIENT
  Age: 43 Year
  Sex: Female

DRUGS (1)
  1. TYKERB [Suspect]
     Indication: DRUG USE FOR UNKNOWN INDICATION
     Dates: start: 20081209

REACTIONS (3)
  - DIARRHOEA [None]
  - DYSPEPSIA [None]
  - FATIGUE [None]
